FAERS Safety Report 5797028-6 (Version None)
Quarter: 2008Q3

REPORT INFORMATION
  Report Type: 
  Country: None (occurrence: None)
  Receive Date: 20080701
  Receipt Date: 20080624
  Transmission Date: 20090109
  Serious: Yes (Hospitalization)
  Sender: FDA-Public Use
  Company Number: US-ELI_LILLY_AND_COMPANY-US200806005418

PATIENT
  Age: 59 Year
  Sex: Female

DRUGS (14)
  1. BYETTA [Suspect]
     Indication: TYPE 2 DIABETES MELLITUS
     Dosage: 10 UG, 2/D
     Route: 058
  2. GLYNASE [Concomitant]
  3. NEXIUM [Concomitant]
     Dosage: 40 MG, DAILY (1/D)
  4. SYNTHROID [Concomitant]
     Dosage: 150 MG, DAILY (1/D)
  5. LISINOPRIL [Concomitant]
     Dosage: 10 MG, DAILY (1/D)
  6. ALLEGRA [Concomitant]
     Dosage: 180 MG, DAILY (1/D)
  7. ASPIRIN [Concomitant]
     Dosage: 81 MG, DAILY (1/D)
  8. VITAMINS NOS [Concomitant]
     Dosage: UNK, DAILY (1/D)
  9. LASIX [Concomitant]
     Dosage: 20 MG, DAILY (1/D)
  10. CELEBREX [Concomitant]
  11. NASACORT [Concomitant]
  12. TRICOR [Concomitant]
  13. FORTICOL [Concomitant]
  14. CALCIUM D [Concomitant]

REACTIONS (1)
  - PANCREATITIS [None]
